FAERS Safety Report 24764250 (Version 1)
Quarter: 2024Q4

REPORT INFORMATION
  Report Type: Spontaneous
  Country: BR (occurrence: BR)
  Receive Date: 20241223
  Receipt Date: 20241223
  Transmission Date: 20250115
  Serious: Yes (Other)
  Sender: TERSERA THERAPEUTICS
  Company Number: BR-AstraZeneca-CH-00765640A

PATIENT

DRUGS (7)
  1. GOSERELIN [Suspect]
     Active Substance: GOSERELIN
     Indication: Product used for unknown indication
     Dosage: 3.6 MILLIGRAM
     Route: 058
     Dates: start: 201912
  2. GOSERELIN [Suspect]
     Active Substance: GOSERELIN
     Dosage: 3.6 MILLIGRAM
     Route: 058
     Dates: start: 20241109
  3. ZOLADEX [Suspect]
     Active Substance: GOSERELIN ACETATE
     Indication: Product used for unknown indication
     Dosage: UNK
     Route: 065
  4. TAMOXIFEN CITRATE [Concomitant]
     Active Substance: TAMOXIFEN CITRATE
     Indication: Breast cancer
     Dosage: 20 MILLIGRAM, QD, A TABLET DAILY
     Route: 065
  5. MAGNESIUM MALATE [Concomitant]
     Active Substance: MAGNESIUM MALATE
     Indication: Product used for unknown indication
     Dosage: 250 MILLIGRAM, BID
     Route: 065
  6. VITAMINS [Concomitant]
     Active Substance: VITAMINS
     Indication: Product used for unknown indication
     Dosage: UNK UNK, QD
     Route: 065
  7. Abtei calcium + vitamin d + vitamin k [Concomitant]
     Indication: Product used for unknown indication
     Dosage: 1000 MICROGRAM, TIW
     Route: 065

REACTIONS (16)
  - Uterine rupture [Unknown]
  - Vertebral lesion [Unknown]
  - Polymenorrhoea [Unknown]
  - Bone demineralisation [Unknown]
  - Breast discharge [Unknown]
  - Head discomfort [Recovered/Resolved]
  - Dizziness [Recovered/Resolved]
  - Headache [Recovered/Resolved]
  - Hot flush [Recovered/Resolved]
  - Hyperhidrosis [Recovered/Resolved]
  - Bone density decreased [Unknown]
  - Nausea [Recovered/Resolved]
  - Osteopenia [Unknown]
  - Blood oestrogen increased [Unknown]
  - Muscle spasms [Unknown]
  - Musculoskeletal stiffness [Unknown]
